FAERS Safety Report 20547973 (Version 2)
Quarter: 2022Q3

REPORT INFORMATION
  Report Type: Report from Study
  Country: NZ (occurrence: NZ)
  Receive Date: 20220303
  Receipt Date: 20220722
  Transmission Date: 20221026
  Serious: Yes (Hospitalization, Other)
  Sender: FDA-Public Use
  Company Number: NZ-MYLANLABS-2022M1016859

PATIENT
  Age: 74 Year
  Sex: Male
  Weight: 79.9 kg

DRUGS (3)
  1. SULFAMETHOXAZOLE\TRIMETHOPRIM [Suspect]
     Active Substance: SULFAMETHOXAZOLE\TRIMETHOPRIM
     Indication: Upper respiratory tract infection
     Dosage: UNK, BID (480, 2X/DAY)
     Route: 048
     Dates: start: 20220124, end: 20220203
  2. AVELUMAB [Suspect]
     Active Substance: AVELUMAB
     Indication: Renal cell carcinoma
     Dosage: 736 MILLIGRAM, Q2W
     Route: 042
     Dates: start: 20170628, end: 20220121
  3. INLYTA [Suspect]
     Active Substance: AXITINIB
     Indication: Renal cell carcinoma
     Dosage: 2 MILLIGRAM, BID, 2 MG, 2X/DAY
     Route: 048
     Dates: start: 20170623, end: 20220203

REACTIONS (2)
  - Acute kidney injury [Unknown]
  - Hypokalaemia [Unknown]

NARRATIVE: CASE EVENT DATE: 20220101
